FAERS Safety Report 7751664-6 (Version None)
Quarter: 2011Q3

REPORT INFORMATION
  Report Type: 
  Country: None (occurrence: None)
  Receive Date: 20110914
  Receipt Date: 20110826
  Transmission Date: 20111222
  Serious: Yes (Other)
  Sender: FDA-Public Use
  Company Number: PHHY2011FR76960

PATIENT
  Age: 64 Year
  Sex: Female

DRUGS (2)
  1. XALATAN [Concomitant]
  2. RASILEZ HCT [Suspect]
     Dosage: 150/12.5 MG
     Route: 048
     Dates: end: 20110501

REACTIONS (2)
  - CONJUNCTIVITIS [None]
  - INTRAOCULAR PRESSURE INCREASED [None]
